FAERS Safety Report 14950342 (Version 3)
Quarter: 2018Q2

REPORT INFORMATION
  Report Type: Report from Study
  Country: None (occurrence: DO)
  Receive Date: 20180530
  Receipt Date: 20180621
  Transmission Date: 20180711
  Serious: Yes (Death, Other)
  Sender: FDA-Public Use
  Company Number: DO-ABBVIE-18K-279-2371036-00

PATIENT
  Age: 64 Year
  Sex: Female

DRUGS (1)
  1. HUMIRA [Suspect]
     Active Substance: ADALIMUMAB
     Indication: RHEUMATOID ARTHRITIS
     Route: 058
     Dates: start: 20171128, end: 201805

REACTIONS (4)
  - Cardiomegaly [Not Recovered/Not Resolved]
  - Urinary tract infection [Fatal]
  - Septic shock [Fatal]
  - Hypertension [Fatal]

NARRATIVE: CASE EVENT DATE: 20180509
